FAERS Safety Report 10929215 (Version 1)
Quarter: 2015Q1

REPORT INFORMATION
  Report Type: Spontaneous
  Country: US (occurrence: None)
  Receive Date: 20150318
  Receipt Date: 20150318
  Transmission Date: 20150721
  Serious: Yes (Disabling)
  Sender: FDA-Public Use
  Company Number: None

PATIENT
  Age: 58 Year
  Sex: Female
  Weight: 65.77 kg

DRUGS (7)
  1. CYMBALTA [Concomitant]
     Active Substance: DULOXETINE HYDROCHLORIDE
  2. PROBIOTIC [Concomitant]
     Active Substance: PROBIOTICS NOS
  3. DULOXETINE [Suspect]
     Active Substance: DULOXETINE
     Indication: DEPRESSION
     Dosage: 1CAP EVERY DAY ALT 2 EVERY OTH?1CAP EVERY DAY ALT
     Dates: start: 20150226, end: 20150316
  4. DULOXETINE [Suspect]
     Active Substance: DULOXETINE
     Indication: FIBROMYALGIA
     Dosage: 1CAP EVERY DAY ALT 2 EVERY OTH?1CAP EVERY DAY ALT
     Dates: start: 20150226, end: 20150316
  5. CLARITON [Concomitant]
  6. VITAMIN D [Concomitant]
     Active Substance: CHOLECALCIFEROL
  7. FISH OIL [Concomitant]
     Active Substance: FISH OIL

REACTIONS (15)
  - Gastrointestinal disorder [None]
  - Thinking abnormal [None]
  - Pain [None]
  - Metabolic disorder [None]
  - Feeling abnormal [None]
  - Drug ineffective [None]
  - Product substitution issue [None]
  - Depression [None]
  - Dysuria [None]
  - Anger [None]
  - Product quality issue [None]
  - Headache [None]
  - Feeling of despair [None]
  - Rash [None]
  - Palpitations [None]

NARRATIVE: CASE EVENT DATE: 20141201
